FAERS Safety Report 7799166-5 (Version None)
Quarter: 2011Q4

REPORT INFORMATION
  Report Type: 
  Country: None (occurrence: None)
  Receive Date: 20111006
  Receipt Date: 20110929
  Transmission Date: 20120403
  Serious: Yes (Other)
  Sender: FDA-Public Use
  Company Number: DE-SANOFI-AVENTIS-2011SA064098

PATIENT
  Sex: Male

DRUGS (1)
  1. JEVTANA KIT [Suspect]
     Indication: PROSTATE CANCER
     Route: 051

REACTIONS (1)
  - ILEUS [None]
